FAERS Safety Report 8232454-7 (Version None)
Quarter: 2012Q1

REPORT INFORMATION
  Report Type: 
  Country: None (occurrence: None)
  Receive Date: 20120323
  Receipt Date: 20120319
  Transmission Date: 20120608
  Serious: Yes (Death, Hospitalization)
  Sender: FDA-Public Use
  Company Number: GB-AMGEN-GBRCT2012017426

PATIENT
  Age: 64 Year
  Sex: Male

DRUGS (10)
  1. MOVIPREP [Concomitant]
     Indication: CONSTIPATION
     Dosage: UNK
     Dates: start: 20100601
  2. CAPECITABINE [Concomitant]
     Indication: GASTROOESOPHAGEAL CANCER
     Dosage: UNK
     Dates: start: 20100617, end: 20100622
  3. METFORMIN HCL [Concomitant]
     Indication: DIABETES MELLITUS
     Dosage: 500 MG, BID
     Dates: start: 20090101
  4. DEXAMETHASONE [Concomitant]
     Dosage: UNK
     Dates: start: 20100624
  5. OXALIPLATIN [Concomitant]
     Indication: GASTROOESOPHAGEAL CANCER
     Dosage: UNK
     Dates: start: 20100617, end: 20100622
  6. LANSOPRAZOLE [Concomitant]
     Dosage: 30 MG, QD
     Dates: start: 20100605
  7. EPIRUBICIN [Concomitant]
     Indication: GASTROOESOPHAGEAL CANCER
     Dosage: UNK
     Dates: start: 20100617, end: 20100622
  8. PANITUMUMAB [Suspect]
     Indication: GASTROOESOPHAGEAL CANCER
     Dosage: UNK
     Dates: start: 20100617, end: 20100622
  9. AMLODIPINE [Concomitant]
     Indication: HYPERTENSION
     Dosage: 5 MG, UNK
     Dates: start: 20080101
  10. ATENOLOL [Concomitant]
     Indication: HYPERTENSION
     Dosage: 50 MG, UNK
     Dates: start: 20080101

REACTIONS (1)
  - PULMONARY EMBOLISM [None]
